FAERS Safety Report 12277506 (Version 10)
Quarter: 2017Q3

REPORT INFORMATION
  Report Type: Spontaneous
  Country: US (occurrence: US)
  Receive Date: 20160418
  Receipt Date: 20170818
  Transmission Date: 20171127
  Serious: Yes (Hospitalization)
  Sender: FDA-Public Use
  Company Number: US-ACTELION-A-NJ2016-134639

PATIENT
  Age: 43 Year
  Sex: Male
  Weight: 165.8 kg

DRUGS (5)
  1. SILDENAFIL. [Concomitant]
     Active Substance: SILDENAFIL
     Dosage: 40 MG, BID
     Dates: start: 201502
  2. OPSUMIT [Suspect]
     Active Substance: MACITENTAN
     Indication: PULMONARY ARTERIAL HYPERTENSION
     Dosage: 10 MG, QD
     Route: 048
     Dates: start: 20141215
  3. REMODULIN [Suspect]
     Active Substance: TREPROSTINIL
     Indication: PULMONARY ARTERIAL HYPERTENSION
     Dosage: 60 NG/KG, PER MIN
     Route: 058
     Dates: start: 20150914
  4. AMLODIPINE [Concomitant]
     Active Substance: AMLODIPINE BESYLATE
  5. OXYGEN. [Concomitant]
     Active Substance: OXYGEN

REACTIONS (10)
  - Cardiac failure [Not Recovered/Not Resolved]
  - Respiratory failure [Unknown]
  - Drug dose omission [Recovered/Resolved]
  - Oxygen saturation decreased [Not Recovered/Not Resolved]
  - Fluid overload [Unknown]
  - Pulmonary oedema [Not Recovered/Not Resolved]
  - Dyspnoea [Unknown]
  - Fluid retention [Unknown]
  - Disease complication [Not Recovered/Not Resolved]
  - Oedema peripheral [Not Recovered/Not Resolved]

NARRATIVE: CASE EVENT DATE: 201503
